FAERS Safety Report 7740553-9 (Version None)
Quarter: 2011Q3

REPORT INFORMATION
  Report Type: 
  Country: None (occurrence: None)
  Receive Date: 20110909
  Receipt Date: 20110902
  Transmission Date: 20111222
  Serious: Yes (Hospitalization, Other)
  Sender: FDA-Public Use
  Company Number: JP-BRISTOL-MYERS SQUIBB COMPANY-15583495

PATIENT
  Age: 61 Year
  Sex: Male
  Weight: 52 kg

DRUGS (6)
  1. ABILIFY [Suspect]
     Indication: SCHIZOPHRENIA
     Dosage: 24MG 03DEC08-4APR11(853DAYS),12MG 05-13APR11(9DAYS),6MG14-27APR11(14DAYS),3MG28APR-11MAY11(14DAYS)
     Route: 048
     Dates: start: 20081203, end: 20110511
  2. MAGMITT [Concomitant]
     Dosage: TABLET
     Dates: start: 20100511
  3. DEPAKENE [Concomitant]
     Dosage: DEPAKENE-R TABLET
     Dates: start: 20080626
  4. LODOPIN [Concomitant]
  5. SENNOSIDE [Concomitant]
     Dosage: TABLET
  6. BROTIZOLAM [Concomitant]
     Dosage: TABLET
     Dates: start: 20091112

REACTIONS (5)
  - EPILEPSY [None]
  - ALTERED STATE OF CONSCIOUSNESS [None]
  - BLOOD GLUCOSE DECREASED [None]
  - FALL [None]
  - SUBDURAL HAEMATOMA [None]
